FAERS Safety Report 8552561-9 (Version None)
Quarter: 2012Q3

REPORT INFORMATION
  Report Type: 
  Country: None (occurrence: None)
  Receive Date: 20120724
  Receipt Date: 20120724
  Transmission Date: 20120928
  Serious: Yes (Other)
  Sender: FDA-Public Use
  Company Number: None

PATIENT
  Age: 25 Year
  Sex: Female

DRUGS (1)
  1. DOXEPIN HCL [Suspect]
     Indication: ARTHROPOD BITE
     Dosage: 200MG STAT PO
     Route: 048

REACTIONS (4)
  - LETHARGY [None]
  - DRUG PRESCRIBING ERROR [None]
  - WRONG DRUG ADMINISTERED [None]
  - SOMNOLENCE [None]
